FAERS Safety Report 18156584 (Version 5)
Quarter: 2020Q4

REPORT INFORMATION
  Report Type: Spontaneous
  Country: US (occurrence: US)
  Receive Date: 20200817
  Receipt Date: 20201222
  Transmission Date: 20210113
  Serious: No
  Sender: FDA-Public Use
  Company Number: US-PFIZER INC-2020315330

PATIENT
  Age: 66 Year
  Sex: Female

DRUGS (5)
  1. IBRANCE [Suspect]
     Active Substance: PALBOCICLIB
     Dosage: 125 MG
     Dates: start: 2020, end: 2020
  2. LENVIMA [Concomitant]
     Active Substance: LENVATINIB
     Dosage: UNK
  3. IBRANCE [Suspect]
     Active Substance: PALBOCICLIB
     Dosage: 100 MG
  4. IBRANCE [Suspect]
     Active Substance: PALBOCICLIB
     Indication: BREAST CANCER FEMALE
     Dosage: 100 MG
     Dates: start: 2020, end: 2020
  5. IBRANCE [Suspect]
     Active Substance: PALBOCICLIB
     Dosage: 75 MG
     Dates: start: 2020

REACTIONS (16)
  - Neoplasm progression [Unknown]
  - Fatigue [Not Recovered/Not Resolved]
  - White blood cell count decreased [Unknown]
  - Pulmonary pain [Unknown]
  - Tremor [Unknown]
  - Dry eye [Not Recovered/Not Resolved]
  - Alopecia [Unknown]
  - Lip dry [Not Recovered/Not Resolved]
  - Musculoskeletal chest pain [Not Recovered/Not Resolved]
  - Constipation [Recovered/Resolved]
  - Restlessness [Unknown]
  - Anaemia [Unknown]
  - Toothache [Not Recovered/Not Resolved]
  - Chills [Unknown]
  - Lethargy [Unknown]
  - Rash [Unknown]

NARRATIVE: CASE EVENT DATE: 2020
